FAERS Safety Report 22860471 (Version 3)
Quarter: 2025Q3

REPORT INFORMATION
  Report Type: Report from Study
  Country: KR (occurrence: KR)
  Receive Date: 20230824
  Receipt Date: 20250923
  Transmission Date: 20251021
  Serious: Yes (Other)
  Sender: SUNOVION
  Company Number: KR-BIAL-BIAL-12253

PATIENT
  Sex: Female
  Weight: 52 kg

DRUGS (15)
  1. ESLICARBAZEPINE ACETATE [Suspect]
     Active Substance: ESLICARBAZEPINE ACETATE
     Indication: Epilepsy
     Route: 048
     Dates: start: 20230209, end: 20230222
  2. ESLICARBAZEPINE ACETATE [Suspect]
     Active Substance: ESLICARBAZEPINE ACETATE
     Route: 048
     Dates: start: 20230223, end: 20230510
  3. ESLICARBAZEPINE ACETATE [Suspect]
     Active Substance: ESLICARBAZEPINE ACETATE
     Route: 048
     Dates: start: 20230511, end: 20230802
  4. ESLICARBAZEPINE ACETATE [Suspect]
     Active Substance: ESLICARBAZEPINE ACETATE
     Dosage: 1200 MILLIGRAM, QD
     Route: 048
     Dates: start: 20230803
  5. Epilatam [Concomitant]
     Indication: Epilepsy
     Route: 048
  6. Epilatam [Concomitant]
     Route: 048
  7. Myungin disgren [Concomitant]
     Indication: Angina pectoris
     Route: 048
  8. Combirocan [Concomitant]
     Indication: Angina pectoris
     Route: 048
     Dates: start: 20230126, end: 20230510
  9. Vastinan MR [Concomitant]
     Indication: Angina pectoris
     Route: 048
  10. CHOLINE ALFOSCERATE [Concomitant]
     Active Substance: CHOLINE ALFOSCERATE
     Indication: Cerebral infarction
     Route: 048
  11. SINGULAIR [Concomitant]
     Active Substance: MONTELUKAST SODIUM
     Indication: Asthma
     Route: 048
  12. SYNTHROID [Concomitant]
     Active Substance: LEVOTHYROXINE SODIUM
     Indication: Prophylaxis
     Route: 048
  13. GLUCOPHAGE XR [Concomitant]
     Active Substance: METFORMIN HYDROCHLORIDE
     Indication: Diabetes mellitus
     Route: 048
  14. TEGOPRAZAN [Concomitant]
     Active Substance: TEGOPRAZAN
     Indication: Prophylaxis
     Route: 048
  15. AGOMELATINE [Concomitant]
     Active Substance: AGOMELATINE
     Indication: Insomnia
     Route: 048

REACTIONS (6)
  - Suicidal ideation [Not Recovered/Not Resolved]
  - Seizure [Not Recovered/Not Resolved]
  - Seizure [Recovered/Resolved]
  - Hypertension [Not Recovered/Not Resolved]
  - Headache [Not Recovered/Not Resolved]
  - Dizziness [Not Recovered/Not Resolved]

NARRATIVE: CASE EVENT DATE: 20230101
